FAERS Safety Report 9338611 (Version 2)
Quarter: 2013Q2

REPORT INFORMATION
  Report Type: Spontaneous
  Country: JP (occurrence: JP)
  Receive Date: 20130610
  Receipt Date: 20130620
  Transmission Date: 20140414
  Serious: Yes (Other)
  Sender: FDA-Public Use
  Company Number: PHHY2013JP057792

PATIENT
  Sex: Male

DRUGS (3)
  1. VALSARTAN [Suspect]
     Dosage: 80 MG, DAILY
     Route: 048
  2. PREDNISOLONE [Concomitant]
     Indication: EMBOLISM
     Dosage: 20 MG, UNK
     Route: 048
  3. PREDNISOLONE [Concomitant]
     Dosage: 10 MG, UNK
     Route: 048

REACTIONS (4)
  - Renal disorder [Recovered/Resolved]
  - Condition aggravated [Recovered/Resolved]
  - Blood creatinine increased [Recovering/Resolving]
  - Oliguria [Recovering/Resolving]
